FAERS Safety Report 19759939 (Version 1)
Quarter: 2021Q3

REPORT INFORMATION
  Report Type: Spontaneous
  Country: US (occurrence: US)
  Receive Date: 20210830
  Receipt Date: 20210830
  Transmission Date: 20211014
  Serious: No
  Sender: FDA-Public Use
  Company Number: US-GLAXOSMITHKLINE-USCH2021AMR058377

PATIENT
  Age: 33 Year
  Sex: Female
  Weight: 101.6 kg

DRUGS (8)
  1. MOTRIN [Suspect]
     Active Substance: IBUPROFEN
     Indication: PRURITUS
  2. IBUPROFEN. [Suspect]
     Active Substance: IBUPROFEN
     Indication: ILLNESS
  3. IBUPROFEN. [Suspect]
     Active Substance: IBUPROFEN
     Indication: PRURITUS
  4. MOTRIN [Suspect]
     Active Substance: IBUPROFEN
     Indication: ILLNESS
  5. IBUPROFEN. [Suspect]
     Active Substance: IBUPROFEN
     Indication: BURNING SENSATION
     Dosage: UNK
  6. IBUPROFEN. [Suspect]
     Active Substance: IBUPROFEN
     Indication: SWELLING
  7. MOTRIN [Suspect]
     Active Substance: IBUPROFEN
     Indication: SWELLING
  8. MOTRIN [Suspect]
     Active Substance: IBUPROFEN
     Indication: BURNING SENSATION
     Dosage: UNK

REACTIONS (2)
  - Product use in unapproved indication [Unknown]
  - Drug ineffective for unapproved indication [Unknown]
